FAERS Safety Report 21476044 (Version 1)
Quarter: 2022Q4

REPORT INFORMATION
  Report Type: Spontaneous
  Country: US (occurrence: US)
  Receive Date: 20221019
  Receipt Date: 20221019
  Transmission Date: 20230113
  Serious: No
  Sender: FDA-Public Use
  Company Number: US-BRISTOL-MYERS SQUIBB COMPANY-2022-123435

PATIENT
  Age: 36 Year
  Sex: Female

DRUGS (3)
  1. ORENCIA [Suspect]
     Active Substance: ABATACEPT
     Indication: Rheumatoid arthritis
     Route: 058
     Dates: start: 20161027
  2. ORENCIA [Suspect]
     Active Substance: ABATACEPT
     Indication: Menstruation normal
  3. ORENCIA [Suspect]
     Active Substance: ABATACEPT
     Indication: Dysmenorrhoea

REACTIONS (1)
  - Drug ineffective [Unknown]
